FAERS Safety Report 11638661 (Version 5)
Quarter: 2016Q1

REPORT INFORMATION
  Report Type: Spontaneous
  Country: US (occurrence: US)
  Receive Date: 20151016
  Receipt Date: 20160126
  Transmission Date: 20160525
  Serious: Yes (Other)
  Sender: FDA-Public Use
  Company Number: US-BAXTER-2015BAX055696

PATIENT
  Age: 63 Year
  Sex: Female
  Weight: 113 kg

DRUGS (2)
  1. DOPAMINE HYDROCHLORIDE AND DEXTROSE [Suspect]
     Active Substance: DOPAMINE HYDROCHLORIDE
     Indication: RENAL ISCHAEMIA
     Dosage: 2 MICROGRAM PER KILO PER MINUTE
     Route: 042
     Dates: start: 20151006, end: 20151006
  2. DOPAMINE HYDROCHLORIDE AND DEXTROSE [Suspect]
     Active Substance: DOPAMINE HYDROCHLORIDE
     Route: 065

REACTIONS (4)
  - Hypotension [Recovered/Resolved]
  - Mental status changes [Recovered/Resolved]
  - Blood pressure decreased [Recovered/Resolved]
  - Blood pressure decreased [Recovered/Resolved]

NARRATIVE: CASE EVENT DATE: 20151006
